FAERS Safety Report 6046725-6 (Version None)
Quarter: 2009Q1

REPORT INFORMATION
  Report Type: 
  Country: None (occurrence: None)
  Receive Date: 20090122
  Receipt Date: 20090115
  Transmission Date: 20090719
  Serious: Yes (Other)
  Sender: FDA-Public Use
  Company Number: SE-AVENTIS-200816243EU

PATIENT
  Age: 59 Year
  Sex: Female
  Weight: 83 kg

DRUGS (23)
  1. ENOXAPARIN SODIUM [Suspect]
     Indication: THROMBOSIS PROPHYLAXIS
     Route: 058
     Dates: start: 20081111
  2. ACETAMINOPHEN [Suspect]
     Indication: PROPHYLAXIS
     Dates: end: 20081116
  3. PROMITEN                           /00134201/ [Concomitant]
     Indication: PROPHYLAXIS
     Dates: start: 20081112, end: 20081112
  4. PLASMODEX [Concomitant]
     Indication: PROPHYLAXIS
     Dates: start: 20081112, end: 20081112
  5. CATAPRESSAN                        /00171101/ [Concomitant]
     Indication: PROPHYLAXIS
     Dates: start: 20081112, end: 20081112
  6. CYKLOKAPRON [Concomitant]
     Indication: PROPHYLAXIS
     Dates: start: 20081112, end: 20081112
  7. CLINDAMYCIN HCL [Concomitant]
     Dates: start: 20081112, end: 20081112
  8. THEOPHYLLAMIN [Concomitant]
     Dates: start: 20081112, end: 20081112
  9. BETAPRED [Concomitant]
     Indication: PROPHYLAXIS
     Dates: start: 20081112, end: 20081112
  10. OXYCONTIN [Concomitant]
     Indication: PROPHYLAXIS
     Dates: start: 20081113
  11. OXYCODONE HCL [Concomitant]
     Indication: PROPHYLAXIS
     Dates: start: 20081113
  12. ACETYLCYSTEINE [Concomitant]
     Indication: PROPHYLAXIS
  13. BRICANYL [Concomitant]
     Indication: PROPHYLAXIS
  14. CIPRAMIL                           /00582602/ [Concomitant]
     Indication: PROPHYLAXIS
  15. NORMORIX [Concomitant]
     Indication: PROPHYLAXIS
  16. TENORMIN [Concomitant]
     Indication: PROPHYLAXIS
  17. ZOLPIDEM TARTRATE [Concomitant]
     Indication: PROPHYLAXIS
     Dates: end: 20081113
  18. IMOVANE [Concomitant]
     Indication: PROPHYLAXIS
     Dates: start: 20081115
  19. MIANSERIN [Concomitant]
     Indication: PROPHYLAXIS
  20. OMEPRAZOLE [Concomitant]
     Indication: PROPHYLAXIS
  21. RHINOCORT                          /00614601/ [Concomitant]
     Indication: PROPHYLAXIS
  22. KETOGAN                            /00129101/ [Concomitant]
     Indication: PROPHYLAXIS
     Dates: start: 20081112, end: 20081114
  23. TAVEGYL [Concomitant]
     Indication: PROPHYLAXIS
     Dates: start: 20081113, end: 20081113

REACTIONS (1)
  - HEPATIC ENZYME INCREASED [None]
